FAERS Safety Report 7290990-4 (Version None)
Quarter: 2011Q1

REPORT INFORMATION
  Report Type: 
  Country: None (occurrence: None)
  Receive Date: 20110214
  Receipt Date: 20110210
  Transmission Date: 20110831
  Serious: Yes (Death, Hospitalization, Other)
  Sender: FDA-Public Use
  Company Number: MX-ROCHE-759220

PATIENT
  Sex: Female

DRUGS (10)
  1. BETAMETHASONE [Concomitant]
     Route: 055
     Dates: start: 20101013
  2. CAPECITABINE [Suspect]
     Indication: BREAST CANCER
     Dosage: DATE OF LAST DOSE: 21 NOV 2011. FILM COATED TABLET, D1 TO D14 EVERY THREE WEEKS
     Route: 048
     Dates: start: 20101117, end: 20101122
  3. VINFLUNINE [Suspect]
     Indication: BREAST CANCER
     Dosage: DATE OF LAST DOSE: 17 NOV 2010. UNIT: 280 MG/M2, CYCLICALSOLUTION FOR INJECTION, FROM D1 TO D14
     Route: 042
     Dates: start: 20101117
  4. TYLEX [Concomitant]
     Dates: start: 20101013, end: 20101126
  5. SENNA [Concomitant]
     Dates: start: 20101117
  6. SENNA [Concomitant]
     Dates: start: 20101129, end: 20101201
  7. CAPECITABINE [Suspect]
     Dosage: LAST DOSE: 02 DEC 2010
     Route: 048
  8. ALBUTEROL [Concomitant]
     Dates: start: 20101113
  9. BETAMETHASONE [Concomitant]
     Route: 055
     Dates: start: 20101119, end: 20101125
  10. AMBROSOL [Concomitant]
     Dates: start: 20101018, end: 20101202

REACTIONS (4)
  - RESPIRATORY FAILURE [None]
  - LOWER RESPIRATORY TRACT INFECTION [None]
  - HAEMOGLOBIN DECREASED [None]
  - LEUKOCYTOSIS [None]
